FAERS Safety Report 9305505 (Version 1)
Quarter: 2013Q2

REPORT INFORMATION
  Report Type: Spontaneous
  Country: US (occurrence: US)
  Receive Date: 20130523
  Receipt Date: 20130523
  Transmission Date: 20140414
  Serious: No
  Sender: FDA-Public Use
  Company Number: US-ASTRAZENECA-2010SE09311

PATIENT
  Age: 64 Year
  Sex: Female
  Weight: 98 kg

DRUGS (21)
  1. NEXIUM [Suspect]
     Indication: GASTROOESOPHAGEAL REFLUX DISEASE
     Route: 048
  2. TENORMIN [Suspect]
     Route: 048
  3. ZESTRIL [Suspect]
     Route: 048
  4. ZESTRIL [Suspect]
     Dosage: 20 MG DAILY, GENERIC
     Route: 048
  5. CHLONADINE [Concomitant]
  6. ZESTORETIC [Concomitant]
  7. SYMBALTA [Concomitant]
  8. IMIPRAM [Concomitant]
  9. LYRICA [Concomitant]
  10. AMBIEN [Concomitant]
  11. AVANDIA [Concomitant]
  12. NOREL SR [Concomitant]
  13. CLONIDINE [Concomitant]
  14. TOFRANIL [Concomitant]
  15. METFORMIN [Concomitant]
  16. CARDIZEM [Concomitant]
  17. MELATONIN [Concomitant]
  18. FISH OIL [Concomitant]
  19. ALLEGRA [Concomitant]
  20. MULTIVITAMINS [Concomitant]
  21. PAIN MEDICATION [Concomitant]

REACTIONS (7)
  - Fibromyalgia [Unknown]
  - Blood potassium decreased [Unknown]
  - Cystitis [Unknown]
  - Condition aggravated [Unknown]
  - Hypotension [Unknown]
  - Dizziness [Unknown]
  - Drug ineffective [Unknown]
